FAERS Safety Report 5335752-X (Version None)
Quarter: 2007Q1

REPORT INFORMATION
  Report Type: 
  Country: None (occurrence: None)
  Receive Date: 20070322
  Receipt Date: 20061215
  Transmission Date: 20070707
  Serious: No
  Sender: FDA-Public Use
  Company Number: 2006US002921

PATIENT
  Age: 14 Year
  Sex: Male

DRUGS (1)
  1. VESICARE [Suspect]
     Indication: NOCTURIA
     Dosage: ORAL
     Route: 048
     Dates: start: 20061201

REACTIONS (1)
  - DRUG INEFFECTIVE [None]
